FAERS Safety Report 15564791 (Version 1)
Quarter: 2018Q4

REPORT INFORMATION
  Report Type: Spontaneous
  Country: US (occurrence: US)
  Receive Date: 20181029
  Receipt Date: 20181029
  Transmission Date: 20190205
  Serious: No
  Sender: FDA-Public Use
  Company Number: None

PATIENT
  Age: 10 Year
  Sex: Female
  Weight: 31.05 kg

DRUGS (1)
  1. METHYLPHENIDATE ER TABS SUBSTITUTED FOR CONCERTA [Suspect]
     Active Substance: METHYLPHENIDATE
     Indication: ATTENTION DEFICIT/HYPERACTIVITY DISORDER
     Dosage: ?          QUANTITY:1 TABLET(S);?
     Route: 048
     Dates: start: 20181029, end: 20181029

REACTIONS (7)
  - Mood swings [None]
  - Abdominal pain upper [None]
  - Headache [None]
  - Tremor [None]
  - Dizziness [None]
  - Mydriasis [None]
  - Product substitution issue [None]

NARRATIVE: CASE EVENT DATE: 20181029
